FAERS Safety Report 8012839-4 (Version None)
Quarter: 2011Q4

REPORT INFORMATION
  Report Type: 
  Country: None (occurrence: None)
  Receive Date: 20111229
  Receipt Date: 20111220
  Transmission Date: 20120403
  Serious: Yes (Other)
  Sender: FDA-Public Use
  Company Number: JP-JNJFOC-20111209726

PATIENT
  Sex: Male
  Weight: 70 kg

DRUGS (8)
  1. REMICADE [Suspect]
     Route: 042
     Dates: start: 20090305
  2. COLCHICINE [Concomitant]
     Indication: BEHCET'S SYNDROME
     Dates: start: 20081120
  3. SILECE [Concomitant]
     Indication: INSOMNIA
  4. REMICADE [Suspect]
     Indication: BEHCET'S SYNDROME
     Dosage: 15 DOCUMENTED INFUSIONS
     Route: 042
     Dates: start: 20101104
  5. COLCHICINE [Concomitant]
  6. ISONIAZID [Concomitant]
  7. ANTIHISTAMINE [Concomitant]
     Indication: PREMEDICATION
     Dates: start: 20081128, end: 20101104
  8. REMICADE [Suspect]
     Route: 042
     Dates: start: 20081128

REACTIONS (2)
  - GLAUCOMA [None]
  - ECZEMA [None]
